FAERS Safety Report 13983793 (Version 1)
Quarter: 2017Q3

REPORT INFORMATION
  Report Type: Report from Study
  Country: IT (occurrence: IT)
  Receive Date: 20170918
  Receipt Date: 20170918
  Transmission Date: 20171128
  Serious: Yes (Hospitalization)
  Sender: FDA-Public Use
  Company Number: IT-BAYER-2017-173455

PATIENT
  Age: 64 Year
  Sex: Female

DRUGS (7)
  1. FLUOXETINE [Suspect]
     Active Substance: FLUOXETINE HYDROCHLORIDE
     Dosage: 20 MG/D, UNK; 4 MONTHS
  2. OMEPRAZOLE. [Suspect]
     Active Substance: OMEPRAZOLE
     Dosage: UNK
  3. INDAPAMIDE. [Suspect]
     Active Substance: INDAPAMIDE
     Dosage: UNK
  4. ASPIRIN. [Suspect]
     Active Substance: ASPIRIN
     Dosage: UNK
  5. PARACETAMOL [Suspect]
     Active Substance: ACETAMINOPHEN
     Dosage: UNK
  6. DELORAZEPAM [Suspect]
     Active Substance: DELORAZEPAM
     Dosage: UNK
  7. PERINDOPRIL [Suspect]
     Active Substance: PERINDOPRIL
     Dosage: UNK

REACTIONS (9)
  - Mixed liver injury [None]
  - Decreased appetite [None]
  - Abdominal distension [None]
  - Arthralgia [None]
  - Headache [None]
  - Vomiting [None]
  - Chromaturia [None]
  - Fatigue [None]
  - Nausea [None]
